FAERS Safety Report 5907632-X (Version None)
Quarter: 2008Q4

REPORT INFORMATION
  Report Type: 
  Country: None (occurrence: None)
  Receive Date: 20081002
  Receipt Date: 20081002
  Transmission Date: 20090506
  Serious: No
  Sender: FDA-Public Use
  Company Number: None

PATIENT
  Age: 66 Year
  Sex: Female
  Weight: 121.564 kg

DRUGS (1)
  1. PANTOPRAZOLE SODIUM [Suspect]
     Indication: GASTROOESOPHAGEAL REFLUX DISEASE
     Dosage: 40MG ONCE DAILY ORAL
     Route: 048
     Dates: start: 20080528

REACTIONS (4)
  - BLOODY DISCHARGE [None]
  - DRUG DISPENSING ERROR [None]
  - NAUSEA [None]
  - PRODUCT QUALITY ISSUE [None]
